FAERS Safety Report 5429287-3 (Version None)
Quarter: 2007Q3

REPORT INFORMATION
  Report Type: 
  Country: None (occurrence: None)
  Receive Date: 20070827
  Receipt Date: 20070827
  Transmission Date: 20080115
  Serious: Yes (Hospitalization)
  Sender: FDA-Public Use
  Company Number: None

PATIENT
  Sex: Male
  Weight: 116.5 kg

DRUGS (5)
  1. CISPLATIN [Suspect]
     Dosage: 210 MG
     Dates: end: 20070809
  2. FENTANYL TRANSDERMAL SYSTEM [Concomitant]
  3. LACTULOSE [Concomitant]
  4. RADIO MIX [Concomitant]
  5. REGLAN [Concomitant]

REACTIONS (17)
  - BLOOD CALCIUM ABNORMAL [None]
  - BLOOD CHLORIDE ABNORMAL [None]
  - BLOOD MAGNESIUM ABNORMAL [None]
  - CARBON DIOXIDE ABNORMAL [None]
  - CONSTIPATION [None]
  - DEHYDRATION [None]
  - FALL [None]
  - HAEMORRHOIDS [None]
  - HEAD INJURY [None]
  - HYPERNATRAEMIA [None]
  - MUCOSAL INFLAMMATION [None]
  - ORAL PAIN [None]
  - PLATELET COUNT ABNORMAL [None]
  - PLATELET COUNT DECREASED [None]
  - RENAL FAILURE [None]
  - THROMBOSIS [None]
  - WEIGHT DECREASED [None]
